FAERS Safety Report 7110664-X (Version None)
Quarter: 2010Q4

REPORT INFORMATION
  Report Type: 
  Country: None (occurrence: None)
  Receive Date: 20101118
  Receipt Date: 20101111
  Transmission Date: 20110411
  Serious: Yes (Other)
  Sender: FDA-Public Use
  Company Number: A0687232A

PATIENT
  Sex: Male
  Weight: 2.9 kg

DRUGS (12)
  1. PAXIL [Suspect]
     Indication: DEPRESSION
     Dosage: 30MG PER DAY
     Dates: start: 19900101
  2. PRENATAL VITAMINS [Concomitant]
  3. TERBUTALINE SULFATE [Concomitant]
  4. DEPAKOTE [Concomitant]
  5. SEROQUEL [Concomitant]
  6. ANAFRANIL [Concomitant]
  7. MORPHINE [Concomitant]
     Dates: start: 20031101
  8. LITHIUM [Concomitant]
     Dates: start: 20031201
  9. TYLENOL (CAPLET) [Concomitant]
  10. CEFZIL [Concomitant]
  11. SERAX [Concomitant]
  12. MACROBID [Concomitant]

REACTIONS (7)
  - ACQUIRED EPILEPTIC APHASIA [None]
  - AUTISM [None]
  - DEVELOPMENTAL DELAY [None]
  - DRUG EXPOSURE DURING PREGNANCY [None]
  - ENCEPHALOPATHY [None]
  - LUNG DISORDER [None]
  - UMBILICAL CORD PROLAPSE [None]
